FAERS Safety Report 26152910 (Version 1)
Quarter: 2025Q4

REPORT INFORMATION
  Report Type: Report from Study
  Country: US (occurrence: US)
  Receive Date: 20251214
  Receipt Date: 20251214
  Transmission Date: 20260117
  Serious: Yes (Hospitalization, Other)
  Sender: GILEAD
  Company Number: US-GILEAD-2025-0740303

PATIENT
  Sex: Female

DRUGS (3)
  1. SELADELPAR [Suspect]
     Active Substance: SELADELPAR
     Indication: Primary biliary cholangitis
     Dosage: TAKE 1 CAPSULE (10MG) BY MOUTH EVERY MORNING
     Route: 048
  2. GABAPENTIN [Concomitant]
     Active Substance: GABAPENTIN
  3. URSODIOL [Concomitant]
     Active Substance: URSODIOL

REACTIONS (2)
  - Diabetes mellitus [Unknown]
  - Intentional dose omission [Unknown]
